FAERS Safety Report 21625600 (Version 1)
Quarter: 2022Q4

REPORT INFORMATION
  Report Type: Spontaneous
  Country: US (occurrence: None)
  Receive Date: 20221122
  Receipt Date: 20221122
  Transmission Date: 20230113
  Serious: Yes (Other)
  Sender: FDA-Public Use
  Company Number: US-ROCHE-3080960

PATIENT
  Sex: Female

DRUGS (57)
  1. HERCEPTIN [Suspect]
     Active Substance: TRASTUZUMAB
     Indication: Product used for unknown indication
     Route: 065
  2. KADCYLA [Suspect]
     Active Substance: ADO-TRASTUZUMAB EMTANSINE
     Indication: Product used for unknown indication
     Route: 065
  3. PERJETA [Suspect]
     Active Substance: PERTUZUMAB
     Indication: Product used for unknown indication
     Route: 065
  4. XELODA [Suspect]
     Active Substance: CAPECITABINE
     Indication: Product used for unknown indication
     Route: 048
  5. TUKYSA [Suspect]
     Active Substance: TUCATINIB
     Indication: Breast cancer female
     Route: 065
  6. ZOMETA [Concomitant]
     Active Substance: ZOLEDRONIC ACID
  7. LOVENOX [Concomitant]
     Active Substance: ENOXAPARIN SODIUM
  8. ALBUTEROL SULFATE [Concomitant]
     Active Substance: ALBUTEROL SULFATE
  9. CALCIUM CARBONATE\CHOLECALCIFEROL [Concomitant]
     Active Substance: CALCIUM CARBONATE\CHOLECALCIFEROL
  10. CLONIDINE [Concomitant]
     Active Substance: CLONIDINE
  11. EFFEXOR [Concomitant]
     Active Substance: VENLAFAXINE HYDROCHLORIDE
  12. FAMOTIDINE [Concomitant]
     Active Substance: FAMOTIDINE
  13. FLUTICASONE [Concomitant]
     Active Substance: FLUTICASONE
  14. LIDOCAINE\PRILOCAINE [Concomitant]
     Active Substance: LIDOCAINE\PRILOCAINE
  15. MIRALAX [Concomitant]
     Active Substance: POLYETHYLENE GLYCOL 3350
  16. BIOTIN [Concomitant]
     Active Substance: BIOTIN
  17. CALCIUM ASCORBATE [Concomitant]
     Active Substance: CALCIUM ASCORBATE
  18. CALCIUM PANTOTHENATE [Concomitant]
     Active Substance: CALCIUM PANTOTHENATE
  19. CALCIUM PHOSPHATE [Concomitant]
     Active Substance: CALCIUM PHOSPHATE
  20. CHOLINE BITARTRATE [Concomitant]
     Active Substance: CHOLINE BITARTRATE
  21. CHROMIC CHLORIDE [Concomitant]
     Active Substance: CHROMIC CHLORIDE
  22. CHOLECALCIFEROL [Concomitant]
     Active Substance: CHOLECALCIFEROL
  23. CUPRIC SULFATE ANHYDROUS [Concomitant]
     Active Substance: CUPRIC SULFATE ANHYDROUS
  24. CYANOCOBALAMIN [Concomitant]
     Active Substance: CYANOCOBALAMIN
  25. HESPERIDIN [Concomitant]
     Active Substance: HESPERIDIN
  26. INOSITOL [Concomitant]
     Active Substance: INOSITOL
  27. FOLIC ACID [Concomitant]
     Active Substance: FOLIC ACID
  28. LYCOPENE [Concomitant]
     Active Substance: LYCOPENE
  29. LYSINE HYDROCHLORIDE [Concomitant]
     Active Substance: LYSINE HYDROCHLORIDE
  30. MAGNESIUM OXIDE [Concomitant]
     Active Substance: MAGNESIUM OXIDE
  31. MANGANESE SULFATE [Concomitant]
     Active Substance: MANGANESE SULFATE
  32. MOLYBDENUM TRIOXIDE [Concomitant]
  33. NICOTINAMIDE [Concomitant]
     Active Substance: NIACINAMIDE
  34. POTASSIUM IODIDE [Concomitant]
     Active Substance: POTASSIUM IODIDE
  35. POTASSIUM SULFATE [Concomitant]
     Active Substance: POTASSIUM SULFATE
  36. PYRIDOXINE HYDROCHLORIDE [Concomitant]
     Active Substance: PYRIDOXINE HYDROCHLORIDE
  37. RETINOL ACETATE [Concomitant]
  38. RIBOFLAVIN [Concomitant]
     Active Substance: RIBOFLAVIN
  39. SELENOMETHIONINE [Concomitant]
     Active Substance: SELENOMETHIONINE
  40. SILICON DIOXIDE [Concomitant]
     Active Substance: SILICON DIOXIDE
  41. COLLOIDAL ALUMINIUM HYDROXIDE [Concomitant]
  42. SODIUM BORATE DECAHYDRATE [Concomitant]
  43. THIAMINE MONONITRATE [Concomitant]
     Active Substance: THIAMINE MONONITRATE
  44. .ALPHA.-TOCOPHEROL SUCCINATE, D- [Concomitant]
     Active Substance: .ALPHA.-TOCOPHEROL SUCCINATE, D-
  45. UBIDECARENONE [Concomitant]
     Active Substance: UBIDECARENONE
  46. NYSTATIN [Concomitant]
     Active Substance: NYSTATIN
  47. OXYBUTYNIN CHLORIDE [Concomitant]
     Active Substance: OXYBUTYNIN CHLORIDE
  48. PROCHLORPERAZINE MALEATE [Concomitant]
     Active Substance: PROCHLORPERAZINE MALEATE
  49. SERTRALINE [Concomitant]
     Active Substance: SERTRALINE HYDROCHLORIDE
  50. PANTOTHENATE SODIUM [Concomitant]
  51. NICOTINAMIDE [Concomitant]
     Active Substance: NIACINAMIDE
  52. PYRIDOXINE HYDROCHLORIDE [Concomitant]
     Active Substance: PYRIDOXINE HYDROCHLORIDE
  53. TRIAMTERENE [Concomitant]
     Active Substance: TRIAMTERENE
  54. HYDROCHLOROTHIAZIDE [Concomitant]
     Active Substance: HYDROCHLOROTHIAZIDE
  55. TYLENOL [Concomitant]
     Active Substance: ACETAMINOPHEN
  56. CARVEDILOL [Concomitant]
     Active Substance: CARVEDILOL
  57. PHYTONADIONE [Concomitant]
     Active Substance: PHYTONADIONE

REACTIONS (9)
  - Arthralgia [Recovering/Resolving]
  - COVID-19 [Recovering/Resolving]
  - Constipation [Unknown]
  - Depression [Unknown]
  - Back pain [Recovering/Resolving]
  - Ear pain [Recovered/Resolved]
  - Phlebitis [Unknown]
  - Hypertension [Recovering/Resolving]
  - Thrombophlebitis [Unknown]
